FAERS Safety Report 26144392 (Version 1)
Quarter: 2025Q4

REPORT INFORMATION
  Report Type: Spontaneous
  Country: EU (occurrence: EU)
  Receive Date: 20251211
  Receipt Date: 20251211
  Transmission Date: 20260118
  Serious: Yes (Hospitalization, Other)
  Sender: NOVARTIS
  Company Number: EU-Desitin-2025-02887

PATIENT
  Age: 28 Year
  Sex: Male

DRUGS (16)
  1. OXCARBAZEPINE [Suspect]
     Active Substance: OXCARBAZEPINE
     Indication: Product used for unknown indication
     Dosage: 300 MG, Q12H (1-0-1) (300)
     Route: 065
  2. OXCARBAZEPINE [Suspect]
     Active Substance: OXCARBAZEPINE
     Dosage: 900 MG, QD (1-0-2)
     Route: 065
  3. OXCARBAZEPINE [Suspect]
     Active Substance: OXCARBAZEPINE
     Dosage: 600 MG, Q12H (2-0-2)
     Route: 065
  4. LEVETIRACETAM [Suspect]
     Active Substance: LEVETIRACETAM
     Indication: Product used for unknown indication
     Dosage: 500 MG, Q12H (1-0-1)
     Route: 065
  5. LEVETIRACETAM [Suspect]
     Active Substance: LEVETIRACETAM
     Dosage: 750 MG, Q12H (1-0-1)
     Route: 065
  6. LEVETIRACETAM [Suspect]
     Active Substance: LEVETIRACETAM
     Dosage: 1000 MG, Q12H (1-0-1)
     Route: 065
  7. LEVETIRACETAM [Suspect]
     Active Substance: LEVETIRACETAM
     Dosage: 1250 MG, QD (1250 MG-0-1250 MG)
     Route: 065
  8. VALPROATE [Suspect]
     Active Substance: VALPROIC ACID
     Indication: Product used for unknown indication
     Dosage: 1000 MG, Q12H (2-0-2)
     Route: 065
  9. VALPROATE [Suspect]
     Active Substance: VALPROIC ACID
     Dosage: 750 MG, Q12H (1.5-0-1.5)
     Route: 065
  10. BRIVARACETAM [Suspect]
     Active Substance: BRIVARACETAM
     Indication: Product used for unknown indication
     Dosage: 75 MG, QD (25 MG-0-50 MG)
     Route: 065
  11. BRIVARACETAM [Suspect]
     Active Substance: BRIVARACETAM
     Dosage: 100 MG, QD
     Route: 065
  12. BRIVARACETAM [Suspect]
     Active Substance: BRIVARACETAM
     Dosage: 25 MG, QD
     Route: 065
  13. CENOBAMATE [Concomitant]
     Active Substance: CENOBAMATE
     Indication: Product used for unknown indication
     Dosage: 350 MG, QD
     Route: 065
  14. CENOBAMATE [Concomitant]
     Active Substance: CENOBAMATE
     Dosage: 200 MG, QD
     Route: 065
  15. CENOBAMATE [Concomitant]
     Active Substance: CENOBAMATE
     Dosage: 300 MG, QD
     Route: 065
  16. TRAZODONE [Concomitant]
     Active Substance: TRAZODONE HYDROCHLORIDE
     Indication: Product used for unknown indication
     Dosage: 150 MG, QD (0-0-1)
     Route: 065

REACTIONS (7)
  - Epilepsy [Unknown]
  - Drug ineffective [Unknown]
  - Nervousness [Unknown]
  - Restlessness [Unknown]
  - Balance disorder [Unknown]
  - Diplopia [Unknown]
  - Ataxia [Unknown]

NARRATIVE: CASE EVENT DATE: 20220901
